FAERS Safety Report 23892743 (Version 1)
Quarter: 2024Q2

REPORT INFORMATION
  Report Type: Spontaneous
  Country: US (occurrence: None)
  Receive Date: 20240524
  Receipt Date: 20240524
  Transmission Date: 20240716
  Serious: No
  Sender: FDA-Public Use
  Company Number: US-ROCHE-3526171

PATIENT
  Sex: Male

DRUGS (1)
  1. COLUMVI [Suspect]
     Active Substance: GLOFITAMAB-GXBM
     Indication: Diffuse large B-cell lymphoma
     Dosage: DAY 8 OF FIRST CYCLE, THEN 15 10 MG
     Route: 042
     Dates: start: 202402

REACTIONS (3)
  - Pyrexia [Recovered/Resolved]
  - Investigation abnormal [Recovered/Resolved]
  - Peripheral swelling [Not Recovered/Not Resolved]
